FAERS Safety Report 17156018 (Version 2)
Quarter: 2019Q4

REPORT INFORMATION
  Report Type: Report from Study
  Country: None (occurrence: IN)
  Receive Date: 20191216
  Receipt Date: 20191219
  Transmission Date: 20200122
  Serious: Yes (Death)
  Sender: FDA-Public Use
  Company Number: IN-ABBVIE-19K-078-3195886-00

PATIENT
  Age: 36 Year
  Sex: Female

DRUGS (1)
  1. IMBRUVICA [Suspect]
     Active Substance: IBRUTINIB
     Indication: MANTLE CELL LYMPHOMA
     Dosage: 120^S/4 CAPS/DAY
     Route: 048
     Dates: start: 20191017

REACTIONS (1)
  - Death [Fatal]
